FAERS Safety Report 4475529-0 (Version None)
Quarter: 2004Q4

REPORT INFORMATION
  Report Type: 
  Country: None (occurrence: None)
  Receive Date: 20041015
  Receipt Date: 20041004
  Transmission Date: 20050328
  Serious: Yes (Disabling, Other)
  Sender: FDA-Public Use
  Company Number: NZ-MERCK-0410NZL00013

PATIENT
  Age: 81 Year
  Sex: Female

DRUGS (8)
  1. ASPIRIN [Concomitant]
     Route: 048
  2. ATENOLOL [Concomitant]
     Route: 048
  3. EVENING PRIMROSE OIL [Concomitant]
     Route: 065
  4. FELODIPINE [Concomitant]
     Route: 048
  5. HYDROCHLOROTHIAZIDE [Concomitant]
     Route: 065
  6. VIOXX [Suspect]
     Indication: ARTHRITIS
     Route: 048
  7. VITAMINS (UNSPECIFIED) [Concomitant]
     Route: 065
  8. ZOPICLONE [Concomitant]
     Route: 065

REACTIONS (1)
  - CEREBROVASCULAR ACCIDENT [None]
